FAERS Safety Report 6736331-X (Version None)
Quarter: 2010Q2

REPORT INFORMATION
  Report Type: 
  Country: None (occurrence: None)
  Receive Date: 20100521
  Receipt Date: 20100509
  Transmission Date: 20101027
  Serious: Yes (Other)
  Sender: FDA-Public Use
  Company Number: US-JNJFOC-20100505308

PATIENT
  Age: 2 Year
  Sex: Male
  Weight: 12.25 kg

DRUGS (4)
  1. CHILDREN'S MOTRIN [Suspect]
     Route: 048
  2. CHILDREN'S MOTRIN [Suspect]
     Indication: PYREXIA
     Dosage: AS PER PKG, IN 20-30 LBS RANGE, 2 DOSES A DAY
     Route: 048
  3. CHILDREN'S TYLENOL LIQUID BUBBLEGUM YUM [Suspect]
     Route: 048
  4. CHILDREN'S TYLENOL LIQUID BUBBLEGUM YUM [Suspect]
     Indication: PYREXIA
     Dosage: AS PER PKG, FOR 20-30 LBS,ONCE A DAY
     Route: 048

REACTIONS (3)
  - DRUG INEFFECTIVE [None]
  - PRODUCT QUALITY ISSUE [None]
  - PYREXIA [None]
